FAERS Safety Report 16927728 (Version 1)
Quarter: 2019Q4

REPORT INFORMATION
  Report Type: Report from Study
  Country: CL (occurrence: CL)
  Receive Date: 20191016
  Receipt Date: 20191016
  Transmission Date: 20200122
  Serious: Yes (Other)
  Sender: FDA-Public Use
  Company Number: CL-BEH-2019107929

PATIENT
  Age: 68 Year
  Sex: Male

DRUGS (2)
  1. BERINERT [Suspect]
     Active Substance: HUMAN C1-ESTERASE INHIBITOR
     Indication: UNEVALUABLE EVENT
     Dosage: 1500 INTERNATIONAL UNIT
     Route: 042
     Dates: start: 20190930
  2. BERINERT [Suspect]
     Active Substance: HUMAN C1-ESTERASE INHIBITOR
     Indication: UNEVALUABLE EVENT
     Dosage: 1500 INTERNATIONAL UNIT
     Route: 042
     Dates: start: 20190930

REACTIONS (2)
  - Accident at work [Not Recovered/Not Resolved]
  - Limb traumatic amputation [Not Recovered/Not Resolved]

NARRATIVE: CASE EVENT DATE: 20191002
